FAERS Safety Report 5196855-6 (Version None)
Quarter: 2006Q4

REPORT INFORMATION
  Report Type: 
  Country: None (occurrence: None)
  Receive Date: 20061227
  Receipt Date: 20061213
  Transmission Date: 20070319
  Serious: Yes (Other)
  Sender: FDA-Public Use
  Company Number: 2006154101

PATIENT
  Age: 69 Year
  Sex: Female
  Weight: 61.2356 kg

DRUGS (3)
  1. LYRICA [Suspect]
     Indication: PAIN
     Dosage: 50 MG (50 MG, 1 IN 1 D)
     Dates: start: 20061212
  2. SINEMET [Concomitant]
  3. MIRAPEX [Concomitant]

REACTIONS (5)
  - CONDITION AGGRAVATED [None]
  - DYSTONIA [None]
  - FEELING ABNORMAL [None]
  - PAIN [None]
  - SOMNOLENCE [None]
